FAERS Safety Report 8130758-X (Version None)
Quarter: 2012Q1

REPORT INFORMATION
  Report Type: 
  Country: None (occurrence: None)
  Receive Date: 20120213
  Receipt Date: 20120202
  Transmission Date: 20120608
  Serious: No
  Sender: FDA-Public Use
  Company Number: US-BIOGENIDEC-2012BI004409

PATIENT
  Age: 56 Year
  Sex: Female

DRUGS (4)
  1. TYSABRI [Suspect]
     Indication: MULTIPLE SCLEROSIS
     Route: 042
     Dates: start: 20120130
  2. FLORASTOR [Concomitant]
     Indication: CLOSTRIDIAL INFECTION
  3. FLAGYL [Concomitant]
     Indication: CLOSTRIDIAL INFECTION
  4. VSL #3 (PROBIOTICI) [Concomitant]
     Indication: CLOSTRIDIAL INFECTION

REACTIONS (1)
  - LACK OF SATIETY [None]
